FAERS Safety Report 8471816-X (Version None)
Quarter: 2012Q2

REPORT INFORMATION
  Report Type: 
  Country: None (occurrence: None)
  Receive Date: 20120627
  Receipt Date: 20120618
  Transmission Date: 20120825
  Serious: Yes (Hospitalization)
  Sender: FDA-Public Use
  Company Number: FR-ASTRAZENECA-2012SE41678

PATIENT
  Age: 26386 Day
  Sex: Male

DRUGS (8)
  1. ALLOPURINOL [Suspect]
     Route: 065
  2. CRESTOR [Suspect]
     Indication: HYPERCHOLESTEROLAEMIA
     Route: 048
  3. PENTOXIFYLLINE [Suspect]
     Route: 065
  4. BISOPROLOL FUMARATE [Suspect]
     Indication: CARDIOMYOPATHY
     Route: 065
  5. BUMETANIDE [Suspect]
     Route: 065
  6. PERINDOPRIL ERBUMINE [Suspect]
     Route: 065
  7. MOLSIDOMINE [Suspect]
     Route: 065
  8. METFORMIN HCL [Suspect]
     Route: 065

REACTIONS (1)
  - PLEURAL EFFUSION [None]
